FAERS Safety Report 18418787 (Version 1)
Quarter: 2020Q4

REPORT INFORMATION
  Report Type: Spontaneous
  Country: JP (occurrence: JP)
  Receive Date: 20201023
  Receipt Date: 20201023
  Transmission Date: 20210114
  Serious: Yes (Life-Threatening, Other)
  Sender: FDA-Public Use
  Company Number: JP-ACCORD-205689

PATIENT
  Age: 70 Year
  Sex: Female

DRUGS (4)
  1. DOCETAXEL. [Suspect]
     Active Substance: DOCETAXEL
     Indication: NASAL SINUS CANCER
     Dosage: EVERY 4 WEEKS, AT INFUSION RATE 1.5 ML/MIN
     Route: 013
  2. NEDAPLATIN [Suspect]
     Active Substance: NEDAPLATIN
     Indication: NASAL SINUS CANCER
     Dosage: EVERY 4 WEEKS, INFUSED AT A RATE OF 3.0 ML/MIN.
     Route: 013
  3. NEDAPLATIN [Suspect]
     Active Substance: NEDAPLATIN
     Indication: NASAL SINUS CANCER
     Dosage: EVERY 4 WEEKS, AT INFUSION RATE 1.5 ML/MIN
     Route: 013
  4. DOCETAXEL. [Suspect]
     Active Substance: DOCETAXEL
     Indication: NASAL SINUS CANCER
     Dosage: EVERY 4 WEEKS, INFUSED AT A RATE OF 3.0 ML/MIN.
     Route: 013

REACTIONS (1)
  - Cerebral haemorrhage [Recovered/Resolved]
